FAERS Safety Report 12946420 (Version 2)
Quarter: 2016Q4

REPORT INFORMATION
  Report Type: Spontaneous
  Country: JP (occurrence: JP)
  Receive Date: 20161115
  Receipt Date: 20161209
  Transmission Date: 20170207
  Serious: Yes (Hospitalization)
  Sender: FDA-Public Use
  Company Number: JP-UCBSA-2016043293

PATIENT
  Age: 58 Year
  Sex: Male

DRUGS (4)
  1. E KEPPRA [Suspect]
     Active Substance: LEVETIRACETAM
     Indication: TEMPORAL LOBE EPILEPSY
     Dosage: 2000 MG DAILY
     Route: 048
     Dates: end: 201608
  2. SORENTMIN [Concomitant]
     Active Substance: BROTIZOLAM
     Indication: PRODUCT USED FOR UNKNOWN INDICATION
     Dosage: 0.25 MG, ONCE DAILY (QD)
     Route: 048
  3. SILECE [Concomitant]
     Active Substance: FLUNITRAZEPAM
     Indication: PRODUCT USED FOR UNKNOWN INDICATION
     Dosage: 1 MG, ONCE DAILY (QD)
     Route: 048
  4. E KEPPRA [Suspect]
     Active Substance: LEVETIRACETAM
     Dosage: 1000 MG (2 TABLETS OF 500 MG) IN THE MORNING AND 1500 MG (3 TABLETS OF 500 MG) IN THE EVENING
     Route: 048
     Dates: start: 20160824

REACTIONS (1)
  - Partial seizures with secondary generalisation [Recovering/Resolving]

NARRATIVE: CASE EVENT DATE: 201603
